FAERS Safety Report 8554092-9 (Version None)
Quarter: 2012Q3

REPORT INFORMATION
  Report Type: 
  Country: None (occurrence: None)
  Receive Date: 20120731
  Receipt Date: 20120724
  Transmission Date: 20120928
  Serious: Yes (Hospitalization, Disabling)
  Sender: FDA-Public Use
  Company Number: GB-BRISTOL-MYERS SQUIBB COMPANY-16799165

PATIENT
  Age: 47 Year
  Sex: Female

DRUGS (6)
  1. CLONAZEPAM [Concomitant]
     Indication: AGITATION
     Route: 048
     Dates: start: 20120419, end: 20120528
  2. LEVOTHYROXINE SODIUM [Concomitant]
     Indication: HYPOTHYROIDISM
     Route: 048
  3. ARIPIPRAZOLE [Suspect]
     Indication: PSYCHOTIC DISORDER
     Route: 048
     Dates: start: 20120419, end: 20120612
  4. NORETHINDRONE [Concomitant]
     Indication: VAGINAL HAEMORRHAGE
     Route: 048
     Dates: start: 20120502
  5. CORSODYL [Concomitant]
     Indication: GINGIVITIS
     Route: 048
     Dates: start: 20120510
  6. TRANEXAMIC ACID [Concomitant]
     Indication: VAGINAL HAEMORRHAGE
     Route: 048
     Dates: start: 20120502, end: 20120510

REACTIONS (6)
  - BLOOD CREATINE PHOSPHOKINASE INCREASED [None]
  - PYREXIA [None]
  - HEART RATE INCREASED [None]
  - LIVER FUNCTION TEST ABNORMAL [None]
  - NEUROLEPTIC MALIGNANT SYNDROME [None]
  - GASTROINTESTINAL MOTILITY DISORDER [None]
